FAERS Safety Report 15599534 (Version 1)
Quarter: 2018Q4

REPORT INFORMATION
  Report Type: Spontaneous
  Country: IT (occurrence: IT)
  Receive Date: 20181108
  Receipt Date: 20181108
  Transmission Date: 20190205
  Serious: Yes (Other)
  Sender: FDA-Public Use
  Company Number: IT-PFIZER INC-2018455862

PATIENT
  Age: 50 Year
  Sex: Female

DRUGS (10)
  1. TRIPTORELIN [Concomitant]
     Active Substance: TRIPTORELIN
  2. ACIDO ZOLEDRONICO MYLAN [Concomitant]
     Dates: start: 20170118, end: 20170221
  3. TARGIN [Concomitant]
     Active Substance: NALOXONE HYDROCHLORIDE\OXYCODONE HYDROCHLORIDE
  4. IBRANCE [Suspect]
     Active Substance: PALBOCICLIB
     Indication: BREAST CANCER
     Dosage: 125 MG, 1X/DAY
     Route: 048
     Dates: start: 20171011, end: 20171213
  5. ZOLPIDEM TARTRATE. [Concomitant]
     Active Substance: ZOLPIDEM TARTRATE
  6. PLASIL [METOCLOPRAMIDE] [Concomitant]
  7. LEVOPRAID [LEVOSULPIRIDE] [Concomitant]
  8. PARACETAMOL [Concomitant]
     Active Substance: ACETAMINOPHEN
  9. DIBASE [Concomitant]
     Active Substance: CHOLECALCIFEROL
  10. FASLODEX [Concomitant]
     Active Substance: FULVESTRANT
     Dates: start: 20170104, end: 20171213

REACTIONS (7)
  - Anaemia [Recovered/Resolved]
  - Vomiting [Recovered/Resolved]
  - Thrombocytopenia [Recovered/Resolved]
  - Nausea [Recovered/Resolved]
  - Pyrexia [Recovered/Resolved]
  - Neutropenia [Recovered/Resolved]
  - Hypertransaminasaemia [Recovered/Resolved]

NARRATIVE: CASE EVENT DATE: 20171025
